FAERS Safety Report 17980107 (Version 1)
Quarter: 2020Q3

REPORT INFORMATION
  Report Type: Spontaneous
  Country: FR (occurrence: FR)
  Receive Date: 20200703
  Receipt Date: 20200703
  Transmission Date: 20201103
  Serious: Yes (Death, Hospitalization, Other)
  Sender: FDA-Public Use
  Company Number: FR-BRISTOL-MYERS SQUIBB COMPANY-BMS-2020-052123

PATIENT
  Age: 62 Year
  Sex: Male

DRUGS (1)
  1. BELATACEPT [Suspect]
     Active Substance: BELATACEPT
     Indication: RENAL TRANSPLANT
     Dosage: 5 MILLIGRAM/KILOGRAM
     Route: 042

REACTIONS (5)
  - Osteomyelitis [Fatal]
  - Cerebral toxoplasmosis [Fatal]
  - Cytomegalovirus infection [Fatal]
  - Off label use [Unknown]
  - Pneumonia cytomegaloviral [Fatal]
